FAERS Safety Report 5029172-5 (Version None)
Quarter: 2006Q2

REPORT INFORMATION
  Report Type: 
  Country: None (occurrence: None)
  Receive Date: 20060613
  Receipt Date: 20060602
  Transmission Date: 20061013
  Serious: Yes (Hospitalization, Other)
  Sender: FDA-Public Use
  Company Number: HQWYE385618MAY06

PATIENT
  Age: 52 Year
  Sex: Male

DRUGS (3)
  1. RAPAMUNE [Suspect]
     Indication: PROPHYLAXIS AGAINST TRANSPLANT REJECTION
     Dosage: PER PROTOCOL, ORAL
     Route: 048
     Dates: start: 20060406
  2. PREDNISOLONE [Concomitant]
  3. CELLCEPT [Concomitant]

REACTIONS (1)
  - KIDNEY TRANSPLANT REJECTION [None]
